FAERS Safety Report 5274229-7 (Version None)
Quarter: 2007Q1

REPORT INFORMATION
  Report Type: 
  Country: None (occurrence: None)
  Receive Date: 20070323
  Receipt Date: 20070320
  Transmission Date: 20070707
  Serious: Yes (Life-Threatening, Hospitalization)
  Sender: FDA-Public Use
  Company Number: JP-BOEHRINGER INGELHEIM PHARMACEUTICALS, INC.-2007-BP-01952NB

PATIENT
  Sex: Female
  Weight: 41 kg

DRUGS (13)
  1. BI-SIFROL TABLETS [Suspect]
     Indication: RESTLESS LEGS SYNDROME
     Route: 048
     Dates: start: 20061219, end: 20070125
  2. SOLANAX [Concomitant]
     Indication: SOMATISATION DISORDER
     Route: 048
  3. AMOBAN [Concomitant]
     Indication: INSOMNIA
     Route: 048
  4. LASIX [Concomitant]
     Indication: HYPERTENSION
     Route: 048
  5. LASIX [Concomitant]
     Indication: RENAL DISORDER
  6. AMLODIN [Concomitant]
     Indication: HYPERTENSION
     Route: 048
  7. SELBEX [Concomitant]
     Indication: GASTRITIS
     Route: 048
  8. RENIVACE [Concomitant]
     Indication: HYPERTENSION
     Route: 048
  9. RENIVACE [Concomitant]
     Indication: RENAL DISORDER
  10. KALIMATE (CALCIUM POLYSTYRENE SULFONATE) [Concomitant]
     Indication: HYPERKALAEMIA
     Route: 048
  11. ALLOPURINOL [Concomitant]
     Indication: HYPERURICAEMIA
     Route: 048
  12. PASTARON SOFT [Concomitant]
     Route: 062
  13. PROPETO [Concomitant]
     Route: 062

REACTIONS (4)
  - BLOOD GLUCOSE INCREASED [None]
  - CONVULSION [None]
  - DEHYDRATION [None]
  - DIABETES MELLITUS [None]
